FAERS Safety Report 12488102 (Version 4)
Quarter: 2020Q1

REPORT INFORMATION
  Report Type: Spontaneous
  Country: US (occurrence: US)
  Receive Date: 20160622
  Receipt Date: 20200211
  Transmission Date: 20200409
  Serious: No
  Sender: FDA-Public Use
  Company Number: US-PFIZER INC-2016278091

PATIENT
  Age: 81 Year
  Sex: Male
  Weight: 77.98 kg

DRUGS (6)
  1. ELIQUIS [Concomitant]
     Active Substance: APIXABAN
     Indication: CARDIAC DISORDER
     Dosage: UNK
     Dates: start: 201506
  2. TIKOSYN [Suspect]
     Active Substance: DOFETILIDE
     Dosage: 250 UG, 2X/DAY
     Dates: start: 201506
  3. TIKOSYN [Suspect]
     Active Substance: DOFETILIDE
     Dosage: 125 UG, 2X/DAY (1 MORNING AND 1 NIGHT)
  4. METOPROLOL. [Concomitant]
     Active Substance: METOPROLOL
     Indication: CARDIAC DISORDER
     Dosage: 25 MG, UNK
  5. TIKOSYN [Suspect]
     Active Substance: DOFETILIDE
     Indication: CARDIAC DISORDER
     Dosage: UNK
     Dates: start: 201410
  6. ELIQUIS [Concomitant]
     Active Substance: APIXABAN
     Dosage: 5 MG, UNK

REACTIONS (5)
  - Dizziness [Recovering/Resolving]
  - Product dispensing error [Unknown]
  - Hypotension [Recovering/Resolving]
  - Hypoacusis [Unknown]
  - Underdose [Unknown]
